FAERS Safety Report 9362884 (Version 3)
Quarter: 2013Q3

REPORT INFORMATION
  Report Type: Report from Study
  Country: AT (occurrence: AT)
  Receive Date: 20130624
  Receipt Date: 20130826
  Transmission Date: 20140515
  Serious: Yes (Hospitalization, Other)
  Sender: FDA-Public Use
  Company Number: AT-ROCHE-1231588

PATIENT
  Age: 64 Year
  Sex: Male
  Weight: 98 kg

DRUGS (5)
  1. RITUXIMAB [Suspect]
     Indication: CHRONIC LYMPHOCYTIC LEUKAEMIA
     Dosage: DATE OF MOST RESENT DOSE PRIOR TO SAE:27/FEB/2013, DOSE 375 MG/M2
     Route: 042
     Dates: start: 20130227, end: 20130603
  2. SIMVASTATIN [Concomitant]
     Route: 065
  3. PANTOLOC [Concomitant]
     Route: 065
  4. LISINOPRIL [Concomitant]
     Route: 065
  5. AMLODIPINE [Concomitant]
     Route: 065

REACTIONS (2)
  - Pneumonia [Recovering/Resolving]
  - Adenocarcinoma [Unknown]
